FAERS Safety Report 8609732-2 (Version None)
Quarter: 2012Q3

REPORT INFORMATION
  Report Type: 
  Country: None (occurrence: None)
  Receive Date: 20120821
  Receipt Date: 20120730
  Transmission Date: 20120928
  Serious: No
  Sender: FDA-Public Use
  Company Number: US-ASTRAZENECA-2012SE54163

PATIENT
  Age: 54 Year
  Sex: Female
  Weight: 68 kg

DRUGS (4)
  1. SEROQUEL [Suspect]
     Indication: BIPOLAR DISORDER
     Route: 048
  2. ANTIDIABETIC MEDICATION [Concomitant]
  3. ALZHEIMERS MEDICATION [Concomitant]
  4. ANTIDEPRESSANTS [Concomitant]

REACTIONS (5)
  - DIABETES MELLITUS [None]
  - URINARY INCONTINENCE [None]
  - ABNORMAL BEHAVIOUR [None]
  - SLEEP DISORDER [None]
  - AMNESIA [None]
